FAERS Safety Report 9018642 (Version 1)
Quarter: 2013Q1

REPORT INFORMATION
  Report Type: Spontaneous
  Country: GB (occurrence: GB)
  Receive Date: 20130118
  Receipt Date: 20130118
  Transmission Date: 20140127
  Serious: Yes (Disabling, Other)
  Sender: FDA-Public Use
  Company Number: GB-PFIZER INC-2013019361

PATIENT
  Age: 42 Year
  Sex: Female

DRUGS (2)
  1. CHAMPIX [Suspect]
     Indication: SMOKING CESSATION THERAPY
     Route: 048
     Dates: start: 20121203, end: 20121217
  2. CITALOPRAM [Concomitant]
     Dosage: 20MG, 1X/DAY

REACTIONS (8)
  - Substance-induced psychotic disorder [Recovered/Resolved]
  - Hallucination, auditory [Recovering/Resolving]
  - Delusion [Recovering/Resolving]
  - Ideas of reference [Recovering/Resolving]
  - Agitation [Recovering/Resolving]
  - Emotional distress [Recovering/Resolving]
  - Disorientation [Recovering/Resolving]
  - Sleep disorder [Recovering/Resolving]
